FAERS Safety Report 4866801-0 (Version None)
Quarter: 2005Q4

REPORT INFORMATION
  Report Type: 
  Country: None (occurrence: None)
  Receive Date: 20051222
  Receipt Date: 20051213
  Transmission Date: 20060501
  Serious: Yes (Other)
  Sender: FDA-Public Use
  Company Number: 2005168644

PATIENT
  Age: 55 Year
  Sex: Female

DRUGS (4)
  1. EPIRUBICIN [Suspect]
     Indication: NEOPLASM MALIGNANT
     Dosage: 100 MG/M2 EVERY 21 DAYS, INTRAVENOUS
     Route: 042
  2. CYCLOPHOSPHAMIDE [Concomitant]
  3. METHOTREXATE [Concomitant]
  4. FLUOROURACIL [Concomitant]

REACTIONS (7)
  - ARTERIOSCLEROSIS [None]
  - ARTHRALGIA [None]
  - PAIN IN EXTREMITY [None]
  - SKIN TURGOR DECREASED [None]
  - THROMBOSIS [None]
  - VEIN DISORDER [None]
  - VENOUS THROMBOSIS [None]
